FAERS Safety Report 4869138-9 (Version None)
Quarter: 2005Q4

REPORT INFORMATION
  Report Type: 
  Country: None (occurrence: None)
  Receive Date: 20051228
  Receipt Date: 20051228
  Transmission Date: 20060501
  Serious: Yes (Other)
  Sender: FDA-Public Use
  Company Number: None

PATIENT
  Age: 36 Year
  Sex: Male

DRUGS (3)
  1. OXYCODONE HCL [Suspect]
     Indication: BACK PAIN
     Dosage: 40 MG TID
  2. OXYCODONE HCL [Suspect]
     Indication: NECK PAIN
     Dosage: 40 MG TID
  3. OXYCODONE HCL [Suspect]
     Indication: PAIN IN EXTREMITY
     Dosage: 40 MG TID

REACTIONS (1)
  - ABDOMINAL DISCOMFORT [None]
